FAERS Safety Report 24040563 (Version 1)
Quarter: 2024Q3

REPORT INFORMATION
  Report Type: Spontaneous
  Country: US (occurrence: US)
  Receive Date: 20240702
  Receipt Date: 20240702
  Transmission Date: 20241016
  Serious: Yes (Death, Life-Threatening, Hospitalization, Other)
  Sender: CIPLA
  Company Number: US-CIPLA LTD.-2024US06674

PATIENT

DRUGS (2)
  1. WARFARIN [Suspect]
     Active Substance: WARFARIN
     Dosage: UNK
     Route: 048
  2. CARVEDILOL [Suspect]
     Active Substance: CARVEDILOL
     Dosage: UNK
     Route: 048

REACTIONS (9)
  - Cardiogenic shock [Fatal]
  - Cardiac arrest [Fatal]
  - Disseminated intravascular coagulation [Fatal]
  - Shock haemorrhagic [Fatal]
  - Metabolic function test abnormal [Fatal]
  - Prescription drug used without a prescription [Fatal]
  - Intentional overdose [Fatal]
  - Acute kidney injury [Fatal]
  - Pulseless electrical activity [Recovered/Resolved]
